FAERS Safety Report 6628719-2 (Version None)
Quarter: 2010Q1

REPORT INFORMATION
  Report Type: 
  Country: None (occurrence: None)
  Receive Date: 20100225
  Receipt Date: 20091118
  Transmission Date: 20100710
  Serious: Yes (Other)
  Sender: FDA-Public Use
  Company Number: US-JNJFOC-20091106059

PATIENT
  Age: 18 Year
  Sex: Female

DRUGS (1)
  1. MOTRIN IB [Suspect]
     Indication: DYSMENORRHOEA
     Dosage: ORAL
     Route: 048

REACTIONS (1)
  - DRUG HYPERSENSITIVITY [None]
